FAERS Safety Report 6687691-X (Version None)
Quarter: 2010Q2

REPORT INFORMATION
  Report Type: 
  Country: None (occurrence: None)
  Receive Date: 20100419
  Receipt Date: 20100413
  Transmission Date: 20101027
  Serious: Yes (Other)
  Sender: FDA-Public Use
  Company Number: US-BRISTOL-MYERS SQUIBB COMPANY-15050644

PATIENT
  Age: 75 Year
  Sex: Male

DRUGS (3)
  1. ONGLYZA [Suspect]
     Indication: TYPE 2 DIABETES MELLITUS
     Dosage: THERAPY TAKEN FOR 2 WEEKS.
     Route: 048
     Dates: start: 20100305, end: 20100325
  2. ADVAIR DISKUS 100/50 [Concomitant]
  3. GLYBURIDE [Concomitant]

REACTIONS (1)
  - CHRONIC OBSTRUCTIVE PULMONARY DISEASE [None]
